FAERS Safety Report 21071241 (Version 4)
Quarter: 2023Q2

REPORT INFORMATION
  Report Type: Report from Study
  Country: CN (occurrence: CN)
  Receive Date: 20220712
  Receipt Date: 20230502
  Transmission Date: 20230721
  Serious: Yes (Hospitalization)
  Sender: FDA-Public Use
  Company Number: CN-G1 THERAPEUTICS-2022G1CN0000166

PATIENT

DRUGS (13)
  1. TRILACICLIB [Suspect]
     Active Substance: TRILACICLIB
     Indication: Myelosuppression
     Dosage: 338.4 MILLIGRAM; 240 MG/M2 DAY 1 AND 8 OF A 21-DAY CYCLE
     Route: 041
     Dates: start: 20220602, end: 20220623
  2. TRILACICLIB [Suspect]
     Active Substance: TRILACICLIB
     Dosage: 338.4 MILLIGRAM; 240 MG/M2 DAY 1 AND 8 OF A 21-DAY CYCLE
     Route: 041
     Dates: start: 20220705
  3. CARBOPLATIN [Suspect]
     Active Substance: CARBOPLATIN
     Indication: Breast cancer
     Dosage: 217 MILLIGRAM; AUC2 DAY 1 AND 8 OF A 21-DAY CYCLE
     Route: 041
     Dates: start: 20220602, end: 20220623
  4. CARBOPLATIN [Suspect]
     Active Substance: CARBOPLATIN
     Dosage: 173.6 MILLIGRAM; 20% REDUCTION AUC DAY 1 AND 8 OF A 21-DAY CYCLE
     Route: 041
     Dates: start: 20220705
  5. GEMCITABINE [Suspect]
     Active Substance: GEMCITABINE
     Indication: Breast cancer
     Dosage: 1410 MILLIGRAM; 1000 MG/M2 DAY 1 AND 8 OF A 21-DAY CYCLE
     Route: 041
     Dates: start: 20220602, end: 20220623
  6. GEMCITABINE [Suspect]
     Active Substance: GEMCITABINE
     Dosage: 1128 MILLIGRAM; 800 MG/M2 DAY 1 AND 8 OF A 21-DAY CYCLE
     Route: 041
     Dates: start: 20220705
  7. FOSAPREPITANT DIMEGLUMINE [Concomitant]
     Active Substance: FOSAPREPITANT DIMEGLUMINE
     Indication: Prophylaxis of nausea and vomiting
     Dosage: 0.15 G, ONCE
     Route: 042
     Dates: start: 20220602, end: 20220602
  8. FOSAPREPITANT DIMEGLUMINE [Concomitant]
     Active Substance: FOSAPREPITANT DIMEGLUMINE
     Dosage: 0.15 G, ONCE
     Route: 042
     Dates: start: 20220609, end: 20220609
  9. FOSAPREPITANT DIMEGLUMINE [Concomitant]
     Active Substance: FOSAPREPITANT DIMEGLUMINE
     Dosage: 0.15 G, ONCE
     Route: 042
     Dates: start: 20220623, end: 20220623
  10. ONDANSETRON HYDROCHLORIDE [Concomitant]
     Active Substance: ONDANSETRON HYDROCHLORIDE
     Indication: Prophylaxis of nausea and vomiting
     Dosage: 8 MG, ONCE
     Route: 042
     Dates: start: 20220602, end: 20220602
  11. ONDANSETRON HYDROCHLORIDE [Concomitant]
     Active Substance: ONDANSETRON HYDROCHLORIDE
     Dosage: 8 MG, ONCE
     Route: 042
     Dates: start: 20220609, end: 20220609
  12. ONDANSETRON HYDROCHLORIDE [Concomitant]
     Active Substance: ONDANSETRON HYDROCHLORIDE
     Dosage: 8 MG, ONCE
     Route: 042
     Dates: start: 20220623, end: 20220623
  13. TROPISETRON HYDROCHLORIDE [Concomitant]
     Active Substance: TROPISETRON HYDROCHLORIDE
     Indication: Prophylaxis of nausea and vomiting
     Dosage: 5 MG, BID
     Route: 048
     Dates: start: 20220623, end: 20220625

REACTIONS (1)
  - Alanine aminotransferase increased [Recovered/Resolved]

NARRATIVE: CASE EVENT DATE: 20220630
